FAERS Safety Report 9188756 (Version 3)
Quarter: 2013Q2

REPORT INFORMATION
  Report Type: Spontaneous
  Country: US (occurrence: US)
  Receive Date: 20130326
  Receipt Date: 20130415
  Transmission Date: 20140414
  Serious: Yes (Other)
  Sender: FDA-Public Use
  Company Number: PHEH2013US005994

PATIENT
  Sex: Female

DRUGS (7)
  1. HYDROCHLOROTHIAZIDE,VALSARTAN [Suspect]
     Indication: HYPERTENSION
     Dosage: 1 DF (320 MG VALS AND  25 MG HCTZ), QD
     Route: 048
  2. TRICOR [Concomitant]
  3. ASPIRIN [Concomitant]
  4. METAMUCIL [Concomitant]
     Indication: ABDOMINAL DISCOMFORT
  5. NORVASC [Concomitant]
  6. LABETALOL [Concomitant]
  7. VITAMIN A, PLAIN [Concomitant]

REACTIONS (4)
  - Cataract [Unknown]
  - Bowel movement irregularity [Unknown]
  - Hearing impaired [Unknown]
  - Drug ineffective [Unknown]
